FAERS Safety Report 5134366-4 (Version None)
Quarter: 2006Q4

REPORT INFORMATION
  Report Type: 
  Country: None (occurrence: None)
  Receive Date: 20061025
  Receipt Date: 20060831
  Transmission Date: 20070319
  Serious: Yes (Hospitalization, Other)
  Sender: FDA-Public Use
  Company Number: US-BAYER-200615493BWH

PATIENT
  Age: 66 Year
  Sex: Male
  Weight: 72 kg

DRUGS (12)
  1. NEXAVAR [Suspect]
     Indication: RENAL CELL CARCINOMA STAGE IV
     Dosage: TOTAL DAILY DOSE: 800 MG  UNIT DOSE: 200 MG
     Route: 048
     Dates: start: 20060315, end: 20060731
  2. MULTIVITAMIN (NOS) [Concomitant]
  3. ASCORBIC ACID [Concomitant]
  4. HYDROCORTISONE ACETATE [Concomitant]
  5. FLUDROCORTISONE [Concomitant]
  6. LORTAB [Concomitant]
  7. GLUCOSAMINE [Concomitant]
  8. FERROUS SULFATE TAB [Concomitant]
  9. ZOCOR [Concomitant]
  10. TRICOR [Concomitant]
  11. CHONDROITIN [Concomitant]
  12. PERCOCET [Concomitant]
     Indication: PAIN

REACTIONS (14)
  - ABDOMINAL DISTENSION [None]
  - ABDOMINAL PAIN [None]
  - ANAEMIA [None]
  - ANOREXIA [None]
  - ASTHENIA [None]
  - CHILLS [None]
  - ENTEROCOLITIS HAEMORRHAGIC [None]
  - FAECES DISCOLOURED [None]
  - HAEMATOCHEZIA [None]
  - INFLAMMATION [None]
  - INSOMNIA [None]
  - PHARYNGOLARYNGEAL PAIN [None]
  - RECTAL HAEMORRHAGE [None]
  - WEIGHT DECREASED [None]
